FAERS Safety Report 9191069 (Version 3)
Quarter: 2013Q4

REPORT INFORMATION
  Report Type: Spontaneous
  Country: US (occurrence: None)
  Receive Date: 20120703
  Receipt Date: 20131226
  Transmission Date: 20140711
  Serious: Yes (Other)
  Sender: FDA-Public Use
  Company Number: PHEH2012US010390

PATIENT
  Age: 35 Year
  Sex: Female
  Weight: 82.7 kg

DRUGS (8)
  1. GILENYA [Suspect]
     Indication: RELAPSING-REMITTING MULTIPLE SCLEROSIS
     Route: 048
     Dates: start: 20120504
  2. LIPITOR (ATORVASTATIN) [Concomitant]
  3. HYDROCHLOROTHIAZIDE [Concomitant]
  4. GABAPENTIN [Concomitant]
  5. TRAMADOL [Concomitant]
  6. BACLOFEN [Concomitant]
  7. METFORMIN [Concomitant]
  8. LISINOPRIL [Concomitant]

REACTIONS (3)
  - Electrocardiogram T wave abnormal [None]
  - Nausea [None]
  - Maternal exposure during pregnancy [None]
